FAERS Safety Report 17996050 (Version 2)
Quarter: 2021Q1

REPORT INFORMATION
  Report Type: Spontaneous
  Country: CA (occurrence: CA)
  Receive Date: 20200708
  Receipt Date: 20210222
  Transmission Date: 20210419
  Serious: Yes (Life-Threatening, Hospitalization, Other)
  Sender: FDA-Public Use
  Company Number: CA-TEVA-2020-CA-1797292

PATIENT
  Age: 2 Year
  Sex: Male
  Weight: 13 kg

DRUGS (21)
  1. CYCLOPHOSPHAMIDE. [Suspect]
     Active Substance: CYCLOPHOSPHAMIDE
     Indication: CENTRAL NERVOUS SYSTEM NEUROBLASTOMA
     Route: 042
  2. FILGRASTIM [Concomitant]
     Active Substance: FILGRASTIM
  3. MOMETASONE FUROATE. [Concomitant]
     Active Substance: MOMETASONE FUROATE
  4. AMLODIPINE [Concomitant]
     Active Substance: AMLODIPINE BESYLATE
  5. CALCIUM + VITAMIN D [Concomitant]
     Active Substance: CALCIUM\VITAMIN D
  6. MESNA. [Concomitant]
     Active Substance: MESNA
  7. CISPLATIN INJECTION [Suspect]
     Active Substance: CISPLATIN
     Indication: CENTRAL NERVOUS SYSTEM NEUROBLASTOMA
     Route: 042
  8. ACETAMINOPHEN. [Concomitant]
     Active Substance: ACETAMINOPHEN
  9. EMEND [Concomitant]
     Active Substance: APREPITANT
  10. LEVETIRACETAM. [Concomitant]
     Active Substance: LEVETIRACETAM
  11. SODIUM [Concomitant]
     Active Substance: SODIUM
  12. VITAMIN E [Concomitant]
     Active Substance: .ALPHA.-TOCOPHEROL
  13. ETOPOSIDE. [Suspect]
     Active Substance: ETOPOSIDE
     Indication: CENTRAL NERVOUS SYSTEM NEUROBLASTOMA
     Route: 042
  14. DIMENHYDRINATE. [Concomitant]
     Active Substance: DIMENHYDRINATE
  15. MAGNESIUM [Concomitant]
     Active Substance: MAGNESIUM
  16. METOCLOPRAMIDE. [Concomitant]
     Active Substance: METOCLOPRAMIDE
  17. ONDANSETRON [Concomitant]
     Active Substance: ONDANSETRON
  18. VINCRISTINE SULFATE. [Suspect]
     Active Substance: VINCRISTINE SULFATE
     Indication: CENTRAL NERVOUS SYSTEM NEUROBLASTOMA
     Route: 042
  19. FUROSEMIDE. [Concomitant]
     Active Substance: FUROSEMIDE
  20. AMOXI?CLAV [Concomitant]
     Active Substance: AMOXICILLIN\CLAVULANATE POTASSIUM
  21. SULFAMETHOXAZOLEAND TRIMETHOPRIM [Concomitant]
     Active Substance: SULFAMETHOXAZOLE\TRIMETHOPRIM

REACTIONS (10)
  - Febrile neutropenia [Recovered/Resolved]
  - Aplasia [Recovered/Resolved]
  - Haematemesis [Recovered/Resolved]
  - Hospitalisation [Recovered/Resolved]
  - Platelet transfusion [Recovered/Resolved]
  - Pancytopenia [Recovered/Resolved]
  - Aplastic anaemia [Recovered/Resolved]
  - Thrombocytopenia [Recovered/Resolved]
  - Vomiting [Recovered/Resolved]
  - Transfusion [Recovered/Resolved]
